FAERS Safety Report 5081958-7 (Version None)
Quarter: 2006Q3

REPORT INFORMATION
  Report Type: 
  Country: None (occurrence: None)
  Receive Date: 20060811
  Receipt Date: 20060803
  Transmission Date: 20061208
  Serious: Yes (Other)
  Sender: FDA-Public Use
  Company Number: 2006EU002279

PATIENT
  Sex: Female

DRUGS (1)
  1. PROTOPIC [Suspect]
     Indication: DERMATITIS ATOPIC
     Dosage: 0.1%, TOPICAL
     Route: 061
     Dates: start: 20050601, end: 20050701

REACTIONS (4)
  - FIBROSARCOMA [None]
  - LYMPHADENOPATHY [None]
  - PRURITUS [None]
  - SKIN IRRITATION [None]
